FAERS Safety Report 7130717-X (Version None)
Quarter: 2010Q4

REPORT INFORMATION
  Report Type: 
  Country: None (occurrence: None)
  Receive Date: 20101201
  Receipt Date: 20101129
  Transmission Date: 20110411
  Serious: Yes (Hospitalization)
  Sender: FDA-Public Use
  Company Number: IT-JNJCH-2010027068

PATIENT
  Sex: Female

DRUGS (2)
  1. ACTIGRIP [Suspect]
     Indication: INFLUENZA
     Dosage: TEXT:FOUR TABLETS TOTAL
     Route: 048
     Dates: start: 20101120, end: 20101122
  2. VOLTAREN [Concomitant]
     Indication: INFLUENZA
     Dosage: TEXT:500MG TWO TABLETS DAY
     Route: 048
     Dates: start: 20101117, end: 20101120

REACTIONS (1)
  - URTICARIA [None]
